FAERS Safety Report 7913158-4 (Version None)
Quarter: 2011Q4

REPORT INFORMATION
  Report Type: 
  Country: None (occurrence: None)
  Receive Date: 20111114
  Receipt Date: 20111104
  Transmission Date: 20120403
  Serious: Yes (Death, Other)
  Sender: FDA-Public Use
  Company Number: BR-ASTRAZENECA-2011SE68054

PATIENT

DRUGS (2)
  1. BRILINTA [Suspect]
     Route: 048
  2. BRILINTA [Suspect]
     Route: 048

REACTIONS (3)
  - HAEMORRHAGE [None]
  - BRAIN OEDEMA [None]
  - DEATH [None]
